FAERS Safety Report 9783545 (Version 1)
Quarter: 2013Q4

REPORT INFORMATION
  Report Type: Spontaneous
  Country: BR (occurrence: BR)
  Receive Date: 20131226
  Receipt Date: 20131226
  Transmission Date: 20140711
  Serious: Yes (Hospitalization)
  Sender: FDA-Public Use
  Company Number: BR-ASTRAZENECA-2013SE92403

PATIENT
  Age: 63 Year
  Sex: Male
  Weight: 86 kg

DRUGS (6)
  1. ATACAND COMB [Suspect]
     Indication: HYPERTENSION
     Dosage: 16 MG/2.5 MG DAILY
     Route: 048
     Dates: start: 2010
  2. ATACAND [Suspect]
     Indication: HYPERTENSION
     Route: 048
     Dates: start: 201304
  3. JANUMET [Concomitant]
     Indication: DIABETES MELLITUS
     Dosage: DAILY
     Route: 048
  4. SOMALGIN [Concomitant]
     Indication: DIABETES MELLITUS
     Dosage: DAILY
     Route: 048
  5. LIPITOR [Concomitant]
     Indication: BLOOD CHOLESTEROL INCREASED
     Dosage: DAILY
     Route: 048
  6. LEXOTAN [Concomitant]
     Indication: INSOMNIA
     Dosage: DAILY
     Route: 048

REACTIONS (2)
  - Blood pressure fluctuation [Recovered/Resolved]
  - Off label use [Not Recovered/Not Resolved]
